FAERS Safety Report 7671094-5 (Version None)
Quarter: 2011Q3

REPORT INFORMATION
  Report Type: 
  Country: None (occurrence: None)
  Receive Date: 20110809
  Receipt Date: 20110727
  Transmission Date: 20111222
  Serious: Yes (Other)
  Sender: FDA-Public Use
  Company Number: DE-UCBSA-037989

PATIENT
  Sex: Female

DRUGS (1)
  1. KEPPRA [Suspect]
     Dosage: TREATED WITH KEPPRA FOR 2.5 YEARS

REACTIONS (2)
  - EPILEPSY [None]
  - HYPONATRAEMIA [None]
